FAERS Safety Report 11688202 (Version 4)
Quarter: 2017Q2

REPORT INFORMATION
  Report Type: Spontaneous
  Country: MX (occurrence: MX)
  Receive Date: 20151030
  Receipt Date: 20170502
  Transmission Date: 20170829
  Serious: Yes (Other)
  Sender: FDA-Public Use
  Company Number: MX-ABBVIE-15P-107-1491715-00

PATIENT
  Age: 72 Year
  Sex: Female
  Weight: 53.7 kg

DRUGS (6)
  1. HYDROXYZINE [Concomitant]
     Active Substance: HYDROXYZINE HYDROCHLORIDE
     Indication: PRODUCT USED FOR UNKNOWN INDICATION
     Dosage: 25 MG/HALF TABLET AT NIGHT
     Route: 065
  2. VIEKIRA PAK [Suspect]
     Active Substance: DASABUVIR\OMBITASVIR\PARITAPREVIR\RITONAVIR
     Indication: CHRONIC HEPATITIS C
     Route: 048
     Dates: start: 20150902, end: 20151125
  3. ARLUY [Concomitant]
     Indication: PRODUCT USED FOR UNKNOWN INDICATION
     Dosage: BEFORE BREAKFAST AND DINNER
     Route: 065
  4. VIRAZIDE [Concomitant]
     Active Substance: RIBAVIRIN
     Indication: CHRONIC HEPATITIS C
     Route: 048
     Dates: start: 20150902, end: 20151125
  5. INDERALICI [Concomitant]
     Indication: VARICES OESOPHAGEAL
     Route: 048
  6. QUESTRAN [Concomitant]
     Active Substance: CHOLESTYRAMINE
     Indication: IRRITABLE BOWEL SYNDROME
     Dosage: 1 PACK 30 MIN BEFORE BREAKFAST/DINNER
     Route: 048

REACTIONS (16)
  - Constipation [Recovered/Resolved]
  - Abdominal distension [Recovered/Resolved]
  - Abdominal pain upper [Recovered/Resolved]
  - Diarrhoea [Recovered/Resolved]
  - Depression [Recovered/Resolved]
  - Pruritus [Recovered/Resolved]
  - Feeling hot [Recovered/Resolved]
  - Fatigue [Recovered/Resolved]
  - Nausea [Recovered/Resolved]
  - Headache [Recovered/Resolved]
  - Blood bilirubin increased [Recovered/Resolved]
  - Decreased appetite [Recovered/Resolved]
  - Crying [Recovered/Resolved]
  - Affect lability [Recovered/Resolved]
  - Coagulation time prolonged [Not Recovered/Not Resolved]
  - Decreased appetite [Recovering/Resolving]

NARRATIVE: CASE EVENT DATE: 20150914
